FAERS Safety Report 24066453 (Version 2)
Quarter: 2024Q3

REPORT INFORMATION
  Report Type: Spontaneous
  Country: JP (occurrence: JP)
  Receive Date: 20240709
  Receipt Date: 20240711
  Transmission Date: 20241017
  Serious: Yes (Death)
  Sender: ELI LILLY AND CO
  Company Number: JP-ELI_LILLY_AND_COMPANY-JP202407004058

PATIENT
  Age: 92 Year
  Sex: Male

DRUGS (1)
  1. OMVOH [Suspect]
     Active Substance: MIRIKIZUMAB-MRKZ
     Indication: Colitis ulcerative
     Dosage: 300 MG
     Route: 041
     Dates: start: 20240611

REACTIONS (1)
  - Cardiac failure [Fatal]
